FAERS Safety Report 5768505-9 (Version None)
Quarter: 2008Q2

REPORT INFORMATION
  Report Type: 
  Country: None (occurrence: None)
  Receive Date: 20080612
  Receipt Date: 20080305
  Transmission Date: 20081010
  Serious: No
  Sender: FDA-Public Use
  Company Number: US-ABBOTT-08P-163-0441344-00

PATIENT
  Sex: Male
  Weight: 68.1 kg

DRUGS (5)
  1. HUMIRA [Suspect]
     Indication: CROHN'S DISEASE
     Route: 058
     Dates: start: 20080214, end: 20080214
  2. HUMIRA [Suspect]
     Route: 058
     Dates: start: 20080229, end: 20080229
  3. HUMIRA [Suspect]
     Route: 058
  4. ACETAMINOPHEN [Concomitant]
     Indication: INFLAMMATION
     Dosage: 4-5 PILLS EVERY DAY
  5. ACETAMINOPHEN [Concomitant]
     Indication: ARTHRALGIA

REACTIONS (3)
  - CROHN'S DISEASE [None]
  - DIARRHOEA [None]
  - NAUSEA [None]
